FAERS Safety Report 8373079-2 (Version None)
Quarter: 2012Q2

REPORT INFORMATION
  Report Type: 
  Country: None (occurrence: None)
  Receive Date: 20120521
  Receipt Date: 20120514
  Transmission Date: 20120825
  Serious: Yes (Other)
  Sender: FDA-Public Use
  Company Number: PHEH2012US010212

PATIENT
  Sex: Male

DRUGS (1)
  1. TASIGNA [Suspect]
     Indication: LEUKAEMIA
     Route: 048

REACTIONS (7)
  - NEOPLASM MALIGNANT [None]
  - PNEUMONIA [None]
  - PYREXIA [None]
  - DECREASED APPETITE [None]
  - METASTASES TO LUNG [None]
  - PANCREATIC CARCINOMA [None]
  - ASTHENIA [None]
